FAERS Safety Report 6667239-6 (Version None)
Quarter: 2010Q2

REPORT INFORMATION
  Report Type: 
  Country: None (occurrence: None)
  Receive Date: 20100401
  Receipt Date: 20100401
  Transmission Date: 20101027
  Serious: Yes (Other)
  Sender: FDA-Public Use
  Company Number: None

PATIENT
  Age: 76 Year
  Sex: Female
  Weight: 75.7507 kg

DRUGS (2)
  1. FOSAMAX [Suspect]
     Indication: OSTEOPOROSIS
     Dosage: 1 PILL 1 A DAY, 1 A WEEK PO
     Route: 048
     Dates: start: 19991002, end: 20081001
  2. BONIVA [Suspect]
     Indication: OSTEOPENIA
     Dosage: 1PILL 1 A MONTH PO
     Route: 048
     Dates: start: 20080901, end: 20100301

REACTIONS (2)
  - JAW DISORDER [None]
  - OSTEONECROSIS [None]
